FAERS Safety Report 4923622-8 (Version None)
Quarter: 2006Q1

REPORT INFORMATION
  Report Type: 
  Country: None (occurrence: None)
  Receive Date: 20060127
  Receipt Date: 20051019
  Transmission Date: 20060701
  Serious: Yes (Other)
  Sender: FDA-Public Use
  Company Number: 2005145941

PATIENT
  Age: 68 Year
  Sex: Female
  Weight: 71.6683 kg

DRUGS (10)
  1. LYRICA [Suspect]
     Indication: ARACHNOIDITIS
     Dosage: 1000 MG (500 MG, 2 IN 1 D)
     Dates: start: 20051001
  2. LYRICA [Suspect]
     Indication: PAIN
     Dosage: 1000 MG (500 MG, 2 IN 1 D)
     Dates: start: 20051001
  3. METHADONE HCL [Suspect]
     Indication: ARACHNOIDITIS
  4. METHADONE HCL [Suspect]
     Indication: PAIN
  5. EFFEXOR [Concomitant]
  6. ALDACTONE [Concomitant]
  7. DILAUDID [Concomitant]
  8. FUROSEMIDE [Concomitant]
  9. K-DUR 10 [Concomitant]
  10. . [Concomitant]

REACTIONS (5)
  - EYELID PTOSIS [None]
  - HYPERHIDROSIS [None]
  - SOMNOLENCE [None]
  - TREMOR [None]
  - VISION BLURRED [None]
